FAERS Safety Report 16163219 (Version 1)
Quarter: 2019Q2

REPORT INFORMATION
  Report Type: Spontaneous
  Country: FR (occurrence: FR)
  Receive Date: 20190405
  Receipt Date: 20190405
  Transmission Date: 20190711
  Serious: Yes (Other)
  Sender: FDA-Public Use
  Company Number: FR-009507513-1903FRA013086

PATIENT
  Age: 59 Year
  Sex: Male

DRUGS (8)
  1. OMEPRAZOLE. [Concomitant]
     Active Substance: OMEPRAZOLE
     Dosage: UNK
  2. SERESTA [Concomitant]
     Active Substance: OXAZEPAM
     Dosage: UNK
  3. PREVISCAN [Concomitant]
     Dosage: UNK
  4. ZOPICLONE [Concomitant]
     Active Substance: ZOPICLONE
     Dosage: UNK
  5. TRANXENE [Concomitant]
     Active Substance: CLORAZEPATE DIPOTASSIUM
     Dosage: UNK
  6. CASPOFUNGIN ACETATE. [Suspect]
     Active Substance: CASPOFUNGIN ACETATE
     Indication: SYSTEMIC CANDIDA
     Dosage: UNK
     Route: 042
     Dates: start: 20190304, end: 20190306
  7. PAROXETINE. [Concomitant]
     Active Substance: PAROXETINE
     Dosage: UNK
  8. ADENURIC [Concomitant]
     Active Substance: FEBUXOSTAT
     Dosage: UNK

REACTIONS (3)
  - Toxic skin eruption [Recovered/Resolved]
  - Eosinophilia [Recovered/Resolved]
  - Rash maculo-papular [Recovered/Resolved]

NARRATIVE: CASE EVENT DATE: 20190304
